FAERS Safety Report 15814965 (Version 2)
Quarter: 2019Q1

REPORT INFORMATION
  Report Type: Report from Study
  Country: None (occurrence: BR)
  Receive Date: 20190112
  Receipt Date: 20190119
  Transmission Date: 20190417
  Serious: Yes (Death, Life-Threatening, Hospitalization)
  Sender: FDA-Public Use
  Company Number: BR-ABBVIE-19K-020-2620366-00

PATIENT
  Age: 29 Year
  Sex: Female
  Weight: 54 kg

DRUGS (3)
  1. HUMIRA [Suspect]
     Active Substance: ADALIMUMAB
     Indication: RHEUMATOID ARTHRITIS
     Route: 058
     Dates: end: 201811
  2. PREDSIM [Suspect]
     Active Substance: PREDNISOLONE
     Route: 065
  3. PREDSIM [Suspect]
     Active Substance: PREDNISOLONE
     Indication: LUNG DISORDER
     Route: 065

REACTIONS (13)
  - Infection [Unknown]
  - Still^s disease [Unknown]
  - Therapeutic response unexpected [Unknown]
  - Post procedural complication [Unknown]
  - Death [Fatal]
  - Respiratory arrest [Unknown]
  - Pneumonia [Unknown]
  - Pre-existing condition improved [Unknown]
  - Immunodeficiency [Unknown]
  - Lung disorder [Not Recovered/Not Resolved]
  - Pruritus allergic [Unknown]
  - Renal impairment [Unknown]
  - Drug hypersensitivity [Unknown]

NARRATIVE: CASE EVENT DATE: 201812
